FAERS Safety Report 7135008-9 (Version None)
Quarter: 2010Q4

REPORT INFORMATION
  Report Type: 
  Country: None (occurrence: None)
  Receive Date: 20101203
  Receipt Date: 20101119
  Transmission Date: 20110411
  Serious: Yes (Hospitalization)
  Sender: FDA-Public Use
  Company Number: FR-MERCK-1010FRA00004

PATIENT
  Age: 47 Year
  Sex: Female
  Weight: 92 kg

DRUGS (17)
  1. JANUMET [Suspect]
     Indication: TYPE 2 DIABETES MELLITUS
     Route: 048
     Dates: start: 20100920, end: 20100901
  2. DIVALPROEX SODIUM [Concomitant]
     Indication: BIPOLAR DISORDER
     Route: 048
  3. AMISULPRIDE [Concomitant]
     Indication: BIPOLAR DISORDER
     Route: 048
     Dates: start: 19920101
  4. CYAMEMAZINE [Concomitant]
     Indication: SLEEP DISORDER
     Route: 048
  5. CODEINE CAMSYLATE AND EUCALYPTOL [Concomitant]
     Indication: SLEEP DISORDER
     Route: 048
  6. DICLOFENAC SODIUM [Concomitant]
     Route: 065
  7. CYPROTERONE ACETATE [Concomitant]
     Indication: CONTRACEPTION
     Route: 065
  8. ESTRADIOL [Concomitant]
     Indication: CONTRACEPTION
     Route: 065
  9. ROSUVASTATIN CALCIUM [Concomitant]
     Indication: HYPERCHOLESTEROLAEMIA
     Route: 048
  10. SACCHAROMYCES BOULARDII [Concomitant]
     Route: 048
     Dates: start: 20100905
  11. AMOXICILLIN [Concomitant]
     Route: 048
     Dates: start: 20100918
  12. TIXOCORTOL PIVALATE [Concomitant]
     Route: 065
     Dates: start: 20100918
  13. POLYETHYLENE GLYCOL 3350 AND POTASSIUM CHLORIDE AND SODIUM BICARBONATE [Concomitant]
     Route: 065
     Dates: start: 20100918
  14. METFORMIN PAMOATE [Concomitant]
     Indication: TYPE 2 DIABETES MELLITUS
     Route: 048
     Dates: end: 20100919
  15. ACEPROMETAZINE MALEATE AND MEPROBAMATE [Concomitant]
     Route: 048
  16. HYDROXYZINE HYDROCHLORIDE [Concomitant]
     Route: 048
  17. AMLODIPINE BESYLATE [Concomitant]
     Route: 048

REACTIONS (2)
  - DIZZINESS [None]
  - MALAISE [None]
